APPROVED DRUG PRODUCT: CHILDREN'S CETIRIZINE HYDROCHLORIDE ALLERGY
Active Ingredient: CETIRIZINE HYDROCHLORIDE
Strength: 5MG/5ML
Dosage Form/Route: SOLUTION;ORAL
Application: A210622 | Product #001
Applicant: HETERO LABS LTD UNIT III
Approved: Mar 13, 2019 | RLD: No | RS: No | Type: OTC